FAERS Safety Report 5173244-1 (Version None)
Quarter: 2006Q4

REPORT INFORMATION
  Report Type: 
  Country: None (occurrence: None)
  Receive Date: 20061206
  Receipt Date: 20061121
  Transmission Date: 20070319
  Serious: Yes (Hospitalization)
  Sender: FDA-Public Use
  Company Number: 153117

PATIENT
  Age: 38 Year
  Sex: Female
  Weight: 73.9363 kg

DRUGS (11)
  1. AVONEX [Suspect]
     Indication: MULTIPLE SCLEROSIS
     Dosage: 30 UG; QW; IM
     Route: 030
     Dates: start: 19990101
  2. ESTRACE [Concomitant]
  3. RITALIN [Concomitant]
  4. KLONOPIN [Concomitant]
  5. WELLBUTRIN [Concomitant]
  6. TRAZODONE HCL [Concomitant]
  7. TRILEPTAL [Concomitant]
  8. FLEXERIL [Concomitant]
  9. VIOXX [Concomitant]
  10. PREVACID [Concomitant]
  11. AXID [Concomitant]

REACTIONS (7)
  - BIPOLAR DISORDER [None]
  - CONDITION AGGRAVATED [None]
  - DEPRESSION [None]
  - INTENTIONAL OVERDOSE [None]
  - MULTIPLE SCLEROSIS [None]
  - MUSCLE TIGHTNESS [None]
  - SUICIDE ATTEMPT [None]
